FAERS Safety Report 19700569 (Version 1)
Quarter: 2021Q3

REPORT INFORMATION
  Report Type: Spontaneous
  Country: FR (occurrence: FR)
  Receive Date: 20210814
  Receipt Date: 20210814
  Transmission Date: 20211014
  Serious: Yes (Hospitalization, Other)
  Sender: FDA-Public Use
  Company Number: FR-AUROBINDO-AUR-APL-2021-034868

PATIENT
  Age: 82 Year
  Sex: Male
  Weight: 71 kg

DRUGS (3)
  1. AMOXICILLIN. [Suspect]
     Active Substance: AMOXICILLIN
     Indication: ARTHRITIS BACTERIAL
     Dosage: UNK (1G * 4 / DAY FROM 9 TO 10/06 THEN 2G * 4 / DAY)
     Route: 042
     Dates: start: 20210609
  2. COLCHICINE. [Suspect]
     Active Substance: COLCHICINE
     Indication: GOUT
     Dosage: UNK (1G FROM 9 TO 10/06 THEN 0.5MG FROM 18/06 TO 24/06)
     Route: 048
     Dates: start: 20210609, end: 20210624
  3. FUROSEMIDE. [Suspect]
     Active Substance: FUROSEMIDE
     Indication: PRODUCT USED FOR UNKNOWN INDICATION
     Dosage: UNK (40MG / DAY)
     Route: 048
     Dates: start: 20210614

REACTIONS (2)
  - Gamma-glutamyltransferase increased [Recovering/Resolving]
  - Hepatic cytolysis [Recovering/Resolving]

NARRATIVE: CASE EVENT DATE: 20210618
